FAERS Safety Report 4923935-X (Version None)
Quarter: 2006Q1

REPORT INFORMATION
  Report Type: 
  Country: None (occurrence: None)
  Receive Date: 20060227
  Receipt Date: 20051213
  Transmission Date: 20060701
  Serious: Yes (Other)
  Sender: FDA-Public Use
  Company Number: US-AMGEN-US161738

PATIENT
  Sex: Male

DRUGS (1)
  1. PROCRIT [Suspect]
     Indication: DIALYSIS
     Dates: start: 20000101

REACTIONS (2)
  - BONE MARROW FAILURE [None]
  - THERAPEUTIC RESPONSE DECREASED [None]
